FAERS Safety Report 8235132-3 (Version None)
Quarter: 2012Q1

REPORT INFORMATION
  Report Type: 
  Country: None (occurrence: None)
  Receive Date: 20120326
  Receipt Date: 20120313
  Transmission Date: 20120608
  Serious: Yes (Other)
  Sender: FDA-Public Use
  Company Number: US-MERCK-1203USA01531

PATIENT
  Age: 41 Year
  Sex: Male
  Weight: 77 kg

DRUGS (6)
  1. TOPROL-XL [Concomitant]
     Indication: CARDIAC DISORDER
     Route: 065
  2. ASPIRIN [Concomitant]
     Indication: CARDIAC DISORDER
     Route: 065
  3. PROPRANOLOL HYDROCHLORIDE [Concomitant]
     Indication: STENT PLACEMENT
     Route: 048
  4. LISINOPRIL [Concomitant]
     Indication: CARDIAC DISORDER
     Route: 065
  5. VYTORIN [Suspect]
     Indication: BLOOD CHOLESTEROL INCREASED
     Route: 048
     Dates: start: 20050601, end: 20051201
  6. LIPITOR [Suspect]
     Indication: BLOOD CHOLESTEROL INCREASED
     Route: 048
     Dates: start: 20030301

REACTIONS (5)
  - TOOTH INFECTION [None]
  - BACK DISORDER [None]
  - ARTHROPATHY [None]
  - BLOOD CHOLESTEROL INCREASED [None]
  - HYPERTENSIVE CRISIS [None]
